FAERS Safety Report 4807268-8 (Version None)
Quarter: 2005Q4

REPORT INFORMATION
  Report Type: 
  Country: None (occurrence: None)
  Receive Date: 20051020
  Receipt Date: 20051020
  Transmission Date: 20060501
  Serious: No
  Sender: FDA-Public Use
  Company Number: None

PATIENT
  Age: 62 Year
  Sex: Female
  Weight: 71 kg

DRUGS (6)
  1. FERRIC GLUCONATE [Suspect]
     Indication: IRON DEFICIENCY ANAEMIA
     Dosage: 250MG  IV
     Route: 042
     Dates: start: 20050928
  2. CARBIDOPA AND LEVODOPA [Concomitant]
  3. OMEPRAZOLE [Concomitant]
  4. FERROUS SULFATE TAB [Concomitant]
  5. AMLODIPINE/BENZAPRIL [Concomitant]
  6. ALLOPURINOL [Concomitant]

REACTIONS (9)
  - CHEST DISCOMFORT [None]
  - DIARRHOEA [None]
  - DYSPNOEA [None]
  - FLUSHING [None]
  - HYPOTENSION [None]
  - INFUSION RELATED REACTION [None]
  - NAUSEA [None]
  - SYNCOPE [None]
  - VOMITING [None]
